FAERS Safety Report 13843450 (Version 1)
Quarter: 2017Q3

REPORT INFORMATION
  Report Type: Report from Study
  Country: US (occurrence: US)
  Receive Date: 20170808
  Receipt Date: 20170808
  Transmission Date: 20171127
  Serious: Yes (Hospitalization)
  Sender: FDA-Public Use
  Company Number: US-BIOGEN-2011BI047835

PATIENT
  Age: 41 Year
  Sex: Female

DRUGS (2)
  1. TYSABRI [Suspect]
     Active Substance: NATALIZUMAB
     Indication: MULTIPLE SCLEROSIS
     Dosage: INFUSED OVER ONE HOUR
     Route: 042
     Dates: start: 20081119, end: 20130731
  2. TYSABRI [Suspect]
     Active Substance: NATALIZUMAB
     Dosage: INFUSED OVER ONE HOUR
     Route: 065
     Dates: start: 20150323, end: 20151221

REACTIONS (11)
  - Muscle spasms [Recovered/Resolved]
  - Peripheral swelling [Recovered/Resolved]
  - Amenorrhoea [Not Recovered/Not Resolved]
  - Bleeding varicose vein [Recovered/Resolved]
  - Procedural pain [Recovered/Resolved]
  - Band sensation [Recovered/Resolved]
  - Ovarian cyst [Recovered/Resolved]
  - Post procedural complication [Recovered/Resolved]
  - Gallbladder neoplasm [Recovered/Resolved]
  - Appendicitis [Recovered/Resolved]
  - Mycotic allergy [Unknown]

NARRATIVE: CASE EVENT DATE: 2010
